FAERS Safety Report 8126259-5 (Version None)
Quarter: 2012Q1

REPORT INFORMATION
  Report Type: 
  Country: None (occurrence: None)
  Receive Date: 20120209
  Receipt Date: 20120208
  Transmission Date: 20120608
  Serious: Yes (Death)
  Sender: FDA-Public Use
  Company Number: PHFR2011GB007408

PATIENT
  Sex: Male

DRUGS (3)
  1. CLOZARIL [Suspect]
     Indication: SCHIZOPHRENIA
     Dosage: 475 MG, UNK
     Route: 048
     Dates: start: 20000816
  2. SERTRALINE HYDROCHLORIDE [Concomitant]
     Indication: DEPRESSED MOOD
     Dosage: 150 MG, UNK
     Route: 048
  3. CLOZARIL [Suspect]
     Dosage: 375 MG
     Route: 048

REACTIONS (4)
  - LOWER RESPIRATORY TRACT INFECTION [None]
  - TYPE 2 DIABETES MELLITUS [None]
  - ANTIPSYCHOTIC DRUG LEVEL INCREASED [None]
  - SUPRAVENTRICULAR TACHYCARDIA [None]
